FAERS Safety Report 4537409-1 (Version None)
Quarter: 2004Q4

REPORT INFORMATION
  Report Type: 
  Country: None (occurrence: None)
  Receive Date: 20041223
  Receipt Date: 20041213
  Transmission Date: 20050328
  Serious: Yes (Hospitalization, Other)
  Sender: FDA-Public Use
  Company Number: CA-ABBOTT-04P-028-0284170-00

PATIENT
  Age: 16 Year
  Sex: Female

DRUGS (3)
  1. VALPROIC ACID [Suspect]
     Indication: EPILEPSY
     Route: 048
  2. VALPROIC ACID [Suspect]
  3. CLOBAZAM [Concomitant]
     Indication: DRUG USE FOR UNKNOWN INDICATION
     Dosage: NOT REPORTED

REACTIONS (7)
  - ADRENAL SUPPRESSION [None]
  - CHOLESTASIS [None]
  - DIFFICULT TO WEAN FROM VENTILATOR [None]
  - INFLUENZA LIKE ILLNESS [None]
  - PANCREATITIS [None]
  - PNEUMONIA [None]
  - SEPTIC SHOCK [None]
